FAERS Safety Report 21136168 (Version 1)
Quarter: 2022Q3

REPORT INFORMATION
  Report Type: Other
  Country: US (occurrence: None)
  Receive Date: 20220727
  Receipt Date: 20220727
  Transmission Date: 20221027
  Serious: Yes (Other)
  Sender: FDA-Public Use
  Company Number: US-ROCHE-3146106

PATIENT
  Sex: Male

DRUGS (1)
  1. XELODA [Suspect]
     Active Substance: CAPECITABINE
     Indication: Rectal cancer
     Dosage: TAKE 3 TABLET BY MOUTH IN THE MORNING AND TAKE 4 TABLET BY MOUTH IN THE EVENING 2 WEEK ON, 1 WEEK OF
     Route: 048

REACTIONS (2)
  - Cellulitis [Unknown]
  - Off label use [Unknown]
